FAERS Safety Report 7522535-5 (Version None)
Quarter: 2011Q2

REPORT INFORMATION
  Report Type: 
  Country: None (occurrence: None)
  Receive Date: 20110603
  Receipt Date: 20091011
  Transmission Date: 20111010
  Serious: Yes (Other)
  Sender: FDA-Public Use
  Company Number: US-BAYER-200936170NA

PATIENT
  Age: 73 Year
  Sex: Male
  Weight: 126 kg

DRUGS (23)
  1. INTEGRILIN [Concomitant]
     Dosage: PER WEIGHT PROTOCOL
     Route: 042
     Dates: start: 20020822
  2. HYDROCODONE BITARTRATE [Concomitant]
     Dosage: 7.5/750
     Route: 048
  3. LASIX [Concomitant]
     Route: 048
  4. NORVASC [Concomitant]
     Dosage: 5MG
     Route: 048
     Dates: start: 19990922
  5. HEPARIN [Concomitant]
     Dosage: 40000/UNITS
     Route: 042
     Dates: start: 20020824, end: 20020824
  6. PROTAMINE SULFATE [Concomitant]
     Dosage: UNK
     Route: 042
     Dates: start: 20020824, end: 20020824
  7. TRASYLOL [Suspect]
     Indication: MITRAL VALVE REPAIR
  8. CARDURA [Concomitant]
     Dosage: 1MG DAILY FOR 2 WEEKS THEN 2MG DAILY
     Dates: start: 20001101
  9. LOPRESSOR [Concomitant]
     Dosage: 25 MG, QD
     Route: 048
     Dates: end: 20000612
  10. NITROGLYCERIN [Concomitant]
     Dosage: 250MCG/ TITRATED
     Route: 042
     Dates: start: 20020822
  11. NITROTAB [Concomitant]
     Dosage: 0.4MG
     Route: 060
  12. MORPHINE [Concomitant]
     Dosage: 2MG/IV/VARIOUS/DOSES
     Route: 042
  13. PLASMA [Concomitant]
     Dosage: UNK
     Dates: start: 20020824
  14. LOPRESSOR [Concomitant]
     Dosage: 5MG
     Route: 042
     Dates: start: 20020823
  15. PLAVIX [Concomitant]
     Route: 048
  16. ACETYLSALICYLIC ACID SRT [Concomitant]
     Route: 048
  17. NITROGLYCERIN [Concomitant]
     Dosage: 50/MCG/TIMES 2 DOSES
     Route: 042
     Dates: start: 20020824
  18. DOBUTAMINE HYDROCHLORIDE [Concomitant]
     Dosage: UNK
     Route: 042
     Dates: start: 20020824
  19. TRASYLOL [Suspect]
     Indication: CORONARY ARTERY BYPASS
     Dosage: UNK
     Route: 042
     Dates: start: 20020824, end: 20020824
  20. LASIX [Concomitant]
     Dosage: 40MG/ VARIOUS DOSES
     Route: 042
     Dates: start: 20020822
  21. RED BLOOD CELLS [Concomitant]
     Dosage: UNK
     Dates: start: 20020824
  22. CRYOPRECIPITATES [Concomitant]
     Dosage: UNK
     Dates: start: 20020824
  23. HEPARIN [Concomitant]
     Dosage: PER PROTOCOL
     Route: 042

REACTIONS (4)
  - INJURY [None]
  - RENAL FAILURE [None]
  - UNEVALUABLE EVENT [None]
  - PAIN [None]
